FAERS Safety Report 4825430-5 (Version None)
Quarter: 2005Q4

REPORT INFORMATION
  Report Type: 
  Country: None (occurrence: None)
  Receive Date: 20051111
  Receipt Date: 20050908
  Transmission Date: 20060501
  Serious: Yes (Other)
  Sender: FDA-Public Use
  Company Number: US-MERCK-0509USA01002

PATIENT
  Age: 18 Month
  Sex: Female
  Weight: 11 kg

DRUGS (5)
  1. SINGULAIR [Suspect]
     Indication: ASTHMA
     Route: 048
     Dates: start: 20050705, end: 20050811
  2. SINGULAIR [Suspect]
     Indication: HYPERSENSITIVITY
     Route: 048
     Dates: start: 20050705, end: 20050811
  3. PULMICORT [Concomitant]
     Route: 065
  4. ALBUTEROL [Concomitant]
     Route: 065
  5. XOPENEX [Concomitant]
     Route: 065

REACTIONS (2)
  - FEBRILE CONVULSION [None]
  - LEUKOPENIA [None]
